FAERS Safety Report 8531940-X (Version None)
Quarter: 2012Q3

REPORT INFORMATION
  Report Type: 
  Country: None (occurrence: None)
  Receive Date: 20120723
  Receipt Date: 20120709
  Transmission Date: 20120928
  Serious: No
  Sender: FDA-Public Use
  Company Number: US-009507513-1207USA002407

PATIENT

DRUGS (4)
  1. LIPITOR [Concomitant]
  2. METFORMIN HYDROCHLORIDE [Concomitant]
  3. BENAZEPRIL HYDROCHLORIDE [Concomitant]
  4. JANUMET [Suspect]
     Indication: DIABETES MELLITUS
     Dosage: 50/1000, MG, BID
     Route: 048
     Dates: start: 20120409, end: 20120610

REACTIONS (3)
  - DRUG INEFFECTIVE [None]
  - DIZZINESS [None]
  - DIARRHOEA [None]
